FAERS Safety Report 25033294 (Version 2)
Quarter: 2025Q3

REPORT INFORMATION
  Report Type: Spontaneous
  Country: EU (occurrence: EU)
  Receive Date: 20250303
  Receipt Date: 20250803
  Transmission Date: 20251021
  Serious: Yes (Other)
  Sender: ALEXION PHARMACEUTICALS
  Company Number: 2025002492-000

PATIENT
  Age: 82 Year
  Sex: Female

DRUGS (6)
  1. QUETIAPINE [Suspect]
     Active Substance: QUETIAPINE
     Dosage: 25 MILLIGRAM, QD
     Dates: start: 202111
  2. PREGABALIN [Suspect]
     Active Substance: PREGABALIN
     Dosage: X 1 DOSAGE FORM  IN 24 HOUR
     Dates: start: 20241204
  3. PREGABALIN [Suspect]
     Active Substance: PREGABALIN
     Dosage: X 75 MILLIGRAM IN 8 HOUR. DUE TO AN ERROR SHE TOOK 1 TABLET EVERY 8 HOUR
     Dates: start: 20241204, end: 20241205
  4. RIVASTIGMINE [Suspect]
     Active Substance: RIVASTIGMINE
     Dosage: X 9.5 MILLIGRAM IN 1 DAY
     Dates: start: 202111
  5. DOMPERIDONE [Suspect]
     Active Substance: DOMPERIDONE
     Dates: start: 202012
  6. BRINTELLIX [Concomitant]
     Active Substance: VORTIOXETINE HYDROBROMIDE
     Dosage: X 20 MILLIGRAM IN 1 DAY
     Dates: start: 202211

REACTIONS (4)
  - Myoclonus [Recovered/Resolved]
  - Renal impairment [Recovering/Resolving]
  - Cystitis [Recovering/Resolving]
  - Hypotension [Unknown]

NARRATIVE: CASE EVENT DATE: 20241205
